FAERS Safety Report 8250196-9 (Version None)
Quarter: 2012Q2

REPORT INFORMATION
  Report Type: 
  Country: None (occurrence: None)
  Receive Date: 20120402
  Receipt Date: 20120328
  Transmission Date: 20120825
  Serious: Yes (Death)
  Sender: FDA-Public Use
  Company Number: IL-SANOFI-AVENTIS-2012SA021592

PATIENT

DRUGS (5)
  1. SALINE [Concomitant]
     Dosage: OVER 90 MINUTES
     Route: 042
  2. FLUOROURACIL [Suspect]
     Indication: GASTRIC CANCER
     Dosage: AS CONTINUOUS INTRAVENOUS INFUSION ON DAYS 1-5 EVERY THREE WEEKS
     Route: 042
  3. SALINE [Concomitant]
     Indication: MEDICATION DILUTION
     Dosage: OVER 1 HOUR
     Route: 042
  4. DOCETAXEL [Suspect]
     Indication: GASTRIC CANCER
     Dosage: IN 1000 CM3 SALINE OVER 1 HR ON DAY 1
     Route: 042
  5. CISPLATIN [Suspect]
     Indication: GASTRIC CANCER
     Dosage: IN 1000 CM3 SALINE OVER 90 MIN ON DAY 1
     Route: 042

REACTIONS (1)
  - THROMBOSIS [None]
